FAERS Safety Report 9996620 (Version 1)
Quarter: 2014Q1

REPORT INFORMATION
  Report Type: Spontaneous
  Country: US (occurrence: None)
  Receive Date: 20140228
  Receipt Date: 20140228
  Transmission Date: 20141002
  Serious: Yes (Other)
  Sender: FDA-Public Use
  Company Number: 20130736

PATIENT
  Sex: 0

DRUGS (1)
  1. INJECTAFER [Suspect]
     Indication: PRODUCT USED FOR UNKNOWN INDICATION
     Dosage: DOSE UNKNOWN UNKNOWN  UNK/ UNK  THERAPY DATES

REACTIONS (1)
  - Hypotension [None]
